FAERS Safety Report 6710015-6 (Version None)
Quarter: 2010Q2

REPORT INFORMATION
  Report Type: 
  Country: None (occurrence: None)
  Receive Date: 20100504
  Receipt Date: 20100426
  Transmission Date: 20101027
  Serious: Yes (Other)
  Sender: FDA-Public Use
  Company Number: JP-PFIZER INC-2010054129

PATIENT
  Age: 38 Year
  Sex: Male

DRUGS (6)
  1. MYCOBUTIN [Suspect]
     Indication: TUBERCULOSIS
     Dosage: 150 MG, ALTERNATE DAY
     Route: 048
     Dates: start: 20090304
  2. TRUVADA [Suspect]
     Indication: HIV INFECTION
     Dosage: 1 DF, 1X/DAY
     Route: 048
     Dates: start: 20090420
  3. PREZISTA [Suspect]
     Indication: HIV INFECTION
     Dosage: 200 MG, 2X/DAY
     Route: 048
     Dates: start: 20090420, end: 20090518
  4. NORVIR [Suspect]
     Indication: HIV INFECTION
     Dosage: 200 MG, 2X/DAY
     Route: 048
     Dates: start: 20090420, end: 20090518
  5. ESANBUTOL [Concomitant]
     Dosage: UNK
     Route: 048
     Dates: start: 20090218
  6. CRAVIT [Concomitant]
     Dosage: UNK
     Route: 048
     Dates: start: 20090218

REACTIONS (1)
  - IMMUNE RECONSTITUTION SYNDROME [None]
